FAERS Safety Report 8579055-9 (Version None)
Quarter: 2012Q3

REPORT INFORMATION
  Report Type: 
  Country: None (occurrence: None)
  Receive Date: 20120808
  Receipt Date: 20120801
  Transmission Date: 20120928
  Serious: Yes (Death)
  Sender: FDA-Public Use
  Company Number: US-CELGENEUS-163-21880-12080356

PATIENT
  Sex: Male
  Weight: 92.162 kg

DRUGS (7)
  1. REVLIMID [Suspect]
     Indication: MULTIPLE MYELOMA
     Dosage: 25 MILLIGRAM
     Route: 048
     Dates: start: 20100401, end: 20100101
  2. REVLIMID [Suspect]
     Dosage: 10 MILLIGRAM
     Route: 048
     Dates: start: 20120620, end: 20120713
  3. REVLIMID [Suspect]
     Dosage: 15 MILLIGRAM
     Route: 048
     Dates: start: 20100701, end: 20110101
  4. OXYCODONE/ACETAMINOPHEN [Concomitant]
     Dosage: 5-325MG
     Route: 065
  5. DILAUDID [Concomitant]
     Dosage: 4 MILLIGRAM
     Route: 065
  6. PREDNISONE TAB [Concomitant]
     Dosage: 20 MILLIGRAM
     Route: 065
  7. ALKERAN [Concomitant]
     Dosage: 2 MILLIGRAM
     Route: 065

REACTIONS (1)
  - DEATH [None]
